FAERS Safety Report 5514968-3 (Version None)
Quarter: 2007Q4

REPORT INFORMATION
  Report Type: 
  Country: None (occurrence: None)
  Receive Date: 20071113
  Receipt Date: 20061025
  Transmission Date: 20080405
  Serious: No
  Sender: FDA-Public Use
  Company Number: A0624900A

PATIENT
  Age: 63 Year
  Sex: Female

DRUGS (3)
  1. COREG [Suspect]
     Indication: LEFT VENTRICULAR DYSFUNCTION
     Route: 048
     Dates: start: 20061022
  2. ATIVAN [Concomitant]
  3. DARVOCET [Concomitant]

REACTIONS (1)
  - HEADACHE [None]
